FAERS Safety Report 8058424-X (Version None)
Quarter: 2012Q1

REPORT INFORMATION
  Report Type: 
  Country: None (occurrence: None)
  Receive Date: 20120119
  Receipt Date: 20120119
  Transmission Date: 20120608
  Serious: Yes (Other)
  Sender: FDA-Public Use
  Company Number: None

PATIENT
  Age: 85 Year
  Sex: Female
  Weight: 76.6579 kg

DRUGS (4)
  1. CARVEDILOL [Suspect]
     Indication: ATRIAL FIBRILLATION
     Dosage: 25 MG /1 PILL 2X DAY
     Dates: start: 20111101, end: 20111201
  2. CARVEDILOL [Suspect]
     Indication: HYPERTENSION
     Dosage: 25 MG /1 PILL 2X DAY
     Dates: start: 20111101, end: 20111201
  3. CARVEDILOL [Suspect]
     Indication: HYPERTENSION
     Dosage: 25 MG /1 PILL 2X DAY
     Dates: start: 20110101, end: 20110301
  4. CARVEDILOL [Suspect]
     Indication: ATRIAL FIBRILLATION
     Dosage: 25 MG /1 PILL 2X DAY
     Dates: start: 20110101, end: 20110301

REACTIONS (4)
  - WEIGHT INCREASED [None]
  - PRODUCT SUBSTITUTION ISSUE [None]
  - DYSPNOEA [None]
  - MALAISE [None]
